FAERS Safety Report 18505746 (Version 2)
Quarter: 2020Q4

REPORT INFORMATION
  Report Type: Other
  Country: JP (occurrence: JP)
  Receive Date: 20201116
  Receipt Date: 20201125
  Transmission Date: 20210114
  Serious: Yes (Death)
  Sender: FDA-Public Use
  Company Number: JP-ROCHE-2713339

PATIENT
  Age: 37 Year
  Sex: Female

DRUGS (3)
  1. CAPECITABINE. [Suspect]
     Active Substance: CAPECITABINE
     Indication: INVASIVE DUCTAL BREAST CARCINOMA
     Route: 048
     Dates: start: 20191008, end: 20200122
  2. PACLITAXEL ALBUMIN [Concomitant]
     Active Substance: PACLITAXEL
     Indication: INVASIVE DUCTAL BREAST CARCINOMA
     Route: 041
  3. ATEZOLIZUMAB. [Suspect]
     Active Substance: ATEZOLIZUMAB
     Indication: INVASIVE DUCTAL BREAST CARCINOMA
     Route: 041
     Dates: start: 20200210, end: 20200403

REACTIONS (1)
  - Death [Fatal]

NARRATIVE: CASE EVENT DATE: 20201009
